FAERS Safety Report 4980972-7 (Version None)
Quarter: 2006Q2

REPORT INFORMATION
  Report Type: 
  Country: None (occurrence: None)
  Receive Date: 20060418
  Receipt Date: 20060328
  Transmission Date: 20061013
  Serious: No
  Sender: FDA-Public Use
  Company Number: US200603007049

PATIENT
  Age: 54 Year
  Sex: Female

DRUGS (7)
  1. CYMBALTA [Suspect]
     Dosage: 60 MG; 120 MG
  2. AMBIEN [Concomitant]
  3. REQUIP [Concomitant]
  4. ZYPREXA [Concomitant]
  5. MIRALAX [Concomitant]
  6. TOPAMAX [Concomitant]
  7. SONATA [Concomitant]

REACTIONS (2)
  - CHROMATURIA [None]
  - HEPATIC ENZYME INCREASED [None]
